FAERS Safety Report 22397205 (Version 4)
Quarter: 2023Q4

REPORT INFORMATION
  Report Type: Report from Study
  Country: US (occurrence: US)
  Receive Date: 20230602
  Receipt Date: 20231027
  Transmission Date: 20240109
  Serious: Yes (Other)
  Sender: FDA-Public Use
  Company Number: US-ABBVIE-5186683

PATIENT
  Sex: Male
  Weight: 118.84 kg

DRUGS (19)
  1. HUMIRA [Suspect]
     Active Substance: ADALIMUMAB
     Indication: Psoriasis
     Dosage: STRENGTH: 40 MILLIGRAM
     Route: 058
  2. HUMIRA [Suspect]
     Active Substance: ADALIMUMAB
     Dosage: FIFTH SHOT
     Route: 058
     Dates: start: 20221230
  3. HUMIRA [Suspect]
     Active Substance: ADALIMUMAB
     Dosage: SECOND SHOT
     Route: 058
     Dates: start: 20221104
  4. HUMIRA [Suspect]
     Active Substance: ADALIMUMAB
     Dosage: FIRST INJECTION
     Route: 058
     Dates: start: 20221028
  5. HUMIRA [Suspect]
     Active Substance: ADALIMUMAB
     Dosage: THIRD SHOT
     Route: 058
     Dates: start: 20221118
  6. HUMIRA [Suspect]
     Active Substance: ADALIMUMAB
     Dosage: FOURTH SHOT
     Route: 058
     Dates: start: 20221214
  7. HUMIRA [Suspect]
     Active Substance: ADALIMUMAB
     Dosage: SIXTH SHOT
     Route: 058
     Dates: start: 20230113
  8. HUMIRA [Suspect]
     Active Substance: ADALIMUMAB
     Dosage: SEVENTH SHOT
     Route: 058
     Dates: start: 20230127
  9. HUMIRA [Suspect]
     Active Substance: ADALIMUMAB
     Dosage: EIGHTH SHOT
     Route: 058
     Dates: start: 20230210
  10. HUMIRA [Suspect]
     Active Substance: ADALIMUMAB
     Dosage: NINTH SHOT
     Route: 058
     Dates: start: 20230224
  11. HUMIRA [Suspect]
     Active Substance: ADALIMUMAB
     Dosage: TENTH SHOT
     Route: 058
     Dates: start: 20230310
  12. HUMIRA [Suspect]
     Active Substance: ADALIMUMAB
     Dosage: ELEVENTH SHOT
     Route: 058
     Dates: start: 20230324
  13. HUMIRA [Suspect]
     Active Substance: ADALIMUMAB
     Dosage: TWELFTH SHOT
     Route: 058
     Dates: start: 20230407
  14. HUMIRA [Suspect]
     Active Substance: ADALIMUMAB
     Dosage: 13TH SHOT
     Route: 058
     Dates: start: 20230421
  15. HUMIRA [Suspect]
     Active Substance: ADALIMUMAB
     Dosage: 14TH SHOT
     Route: 058
     Dates: start: 20230505
  16. HUMIRA [Suspect]
     Active Substance: ADALIMUMAB
     Dosage: 15TH SHOT
     Route: 058
     Dates: start: 20230519
  17. HUMIRA [Suspect]
     Active Substance: ADALIMUMAB
     Dosage: 16TH SHOT
     Route: 058
     Dates: start: 20230910
  18. HUMIRA [Suspect]
     Active Substance: ADALIMUMAB
     Dosage: 17TH SHOT
     Route: 058
     Dates: start: 20230924
  19. HUMIRA [Suspect]
     Active Substance: ADALIMUMAB
     Dosage: 18TH SHOT
     Route: 058
     Dates: start: 20231008

REACTIONS (4)
  - Carpal tunnel syndrome [Unknown]
  - Skin disorder [Unknown]
  - Toe amputation [Unknown]
  - Impaired healing [Unknown]
